FAERS Safety Report 6637666-1 (Version None)
Quarter: 2010Q1

REPORT INFORMATION
  Report Type: 
  Country: None (occurrence: None)
  Receive Date: 20100317
  Receipt Date: 20100302
  Transmission Date: 20100710
  Serious: Yes (Death, Hospitalization, Other)
  Sender: FDA-Public Use
  Company Number: US-TYCO HEALTHCARE/MALLINCKRODT-T201000811

PATIENT
  Age: 78 Year
  Sex: Female

DRUGS (1)
  1. FENTANYL [Suspect]
     Indication: PAIN
     Dosage: 25 MCG/HOUR SIX PATCHES APPLIED
     Route: 062

REACTIONS (4)
  - DRUG ADMINISTRATION ERROR [None]
  - EDUCATIONAL PROBLEM [None]
  - RESPIRATORY RATE DECREASED [None]
  - SOMNOLENCE [None]
